FAERS Safety Report 25740437 (Version 2)
Quarter: 2025Q3

REPORT INFORMATION
  Report Type: Report from Study
  Country: US (occurrence: US)
  Receive Date: 20250829
  Receipt Date: 20250919
  Transmission Date: 20251021
  Serious: Yes (Hospitalization, Other)
  Sender: OTSUKA
  Company Number: US-MMM-Otsuka-BNEZMHLF

PATIENT
  Age: 42 Year
  Sex: Male

DRUGS (2)
  1. TOLVAPTAN [Suspect]
     Active Substance: TOLVAPTAN
     Indication: Congenital cystic kidney disease
     Route: 065
     Dates: start: 20240512
  2. TOLVAPTAN [Suspect]
     Active Substance: TOLVAPTAN
     Route: 065
     Dates: start: 20240512

REACTIONS (3)
  - Ear infection staphylococcal [Unknown]
  - Renal cyst [Recovered/Resolved]
  - Cyst drainage [Recovered/Resolved]

NARRATIVE: CASE EVENT DATE: 20250710
